FAERS Safety Report 24723398 (Version 1)
Quarter: 2024Q4

REPORT INFORMATION
  Report Type: Spontaneous
  Country: DO (occurrence: DO)
  Receive Date: 20241211
  Receipt Date: 20241211
  Transmission Date: 20250115
  Serious: No
  Sender: PFIZER
  Company Number: DO-PFIZER INC-PV202400156226

PATIENT
  Age: 13 Year
  Sex: Male

DRUGS (1)
  1. GENOTROPIN [Suspect]
     Active Substance: SOMATROPIN
     Dosage: 1.5 MG, 1X/DAY

REACTIONS (3)
  - Device malfunction [Unknown]
  - Device leakage [Unknown]
  - Incorrect dose administered [Unknown]

NARRATIVE: CASE EVENT DATE: 20241101
